FAERS Safety Report 5865907-7 (Version None)
Quarter: 2008Q3

REPORT INFORMATION
  Report Type: 
  Country: None (occurrence: None)
  Receive Date: 20080829
  Receipt Date: 20080815
  Transmission Date: 20090109
  Serious: Yes (Death, Life-Threatening, Hospitalization)
  Sender: FDA-Public Use
  Company Number: AU-GENENTECH-232793

PATIENT
  Sex: Female
  Weight: 65 kg

DRUGS (11)
  1. BEVACIZUMAB [Suspect]
     Indication: COLORECTAL CANCER METASTATIC
     Dosage: 487 MG, Q3W
     Route: 042
     Dates: start: 20061031, end: 20061105
  2. CAPECITABINE [Suspect]
     Indication: COLORECTAL CANCER METASTATIC
     Dosage: 3300 MG, Q3W
     Route: 048
     Dates: start: 20061031, end: 20061204
  3. MITOMYCIN [Suspect]
     Indication: COLORECTAL CANCER METASTATIC
     Dosage: 11 MG, Q3W
     Route: 042
     Dates: start: 20061031
  4. MAXOLON [Concomitant]
     Indication: DRUG USE FOR UNKNOWN INDICATION
     Dates: start: 20061027
  5. SINEMET [Concomitant]
     Indication: DRUG USE FOR UNKNOWN INDICATION
     Dosage: UNK, UNK
     Dates: start: 20040615
  6. AVAPRO [Concomitant]
     Indication: DRUG USE FOR UNKNOWN INDICATION
     Dates: start: 19970515
  7. TROPISETRON [Concomitant]
     Indication: DRUG USE FOR UNKNOWN INDICATION
     Dates: start: 20061031
  8. DEXAMETHASONE TAB [Concomitant]
     Indication: DRUG USE FOR UNKNOWN INDICATION
     Dates: start: 20061031
  9. TROPISETRON [Concomitant]
     Route: 065
     Dates: start: 20061101, end: 20061210
  10. PANAMAX [Concomitant]
     Indication: DRUG USE FOR UNKNOWN INDICATION
     Route: 065
     Dates: start: 20061210
  11. PANADEINE [Concomitant]
     Indication: DRUG USE FOR UNKNOWN INDICATION
     Route: 065

REACTIONS (4)
  - BLOOD PRESSURE SYSTOLIC INCREASED [None]
  - NEUTROPENIC COLITIS [None]
  - PERIPHERAL EMBOLISM [None]
  - SUDDEN DEATH [None]
